FAERS Safety Report 4800109-4 (Version None)
Quarter: 2005Q4

REPORT INFORMATION
  Report Type: 
  Country: None (occurrence: None)
  Receive Date: 20051017
  Receipt Date: 20051012
  Transmission Date: 20060501
  Serious: Yes (Other)
  Sender: FDA-Public Use
  Company Number: US-GLAXOSMITHKLINE-A0577989A

PATIENT
  Age: 77 Year
  Sex: Female

DRUGS (2)
  1. REQUIP [Suspect]
     Dosage: .25MG AT NIGHT
     Route: 048
     Dates: start: 20051007
  2. BLOOD PRESSURE MEDICATION [Concomitant]

REACTIONS (2)
  - MYALGIA [None]
  - URINARY INCONTINENCE [None]
